FAERS Safety Report 9321121 (Version 2)
Quarter: 2013Q2

REPORT INFORMATION
  Report Type: Spontaneous
  Country: CA (occurrence: None)
  Receive Date: 20130528
  Receipt Date: 20130612
  Transmission Date: 20140414
  Serious: Yes (Disabling)
  Sender: FDA-Public Use
  Company Number: 2013AP005329

PATIENT
  Age: 45 Year
  Sex: Female

DRUGS (1)
  1. METFORMIN [Suspect]
     Indication: BREAST CANCER
     Route: 048
     Dates: start: 20130115, end: 20130424

REACTIONS (3)
  - Cystoid macular oedema [None]
  - Retinal vein occlusion [None]
  - Off label use [None]
